FAERS Safety Report 21397722 (Version 2)
Quarter: 2023Q1

REPORT INFORMATION
  Report Type: Other
  Country: QA (occurrence: None)
  Receive Date: 20220930
  Receipt Date: 20230327
  Transmission Date: 20230418
  Serious: No
  Sender: FDA-Public Use
  Company Number: QA-ROCHE-3188681

PATIENT
  Age: 33 Year
  Sex: Female
  Weight: 58 kg

DRUGS (6)
  1. OCRELIZUMAB [Suspect]
     Active Substance: OCRELIZUMAB
     Indication: Relapsing-remitting multiple sclerosis
     Dosage: NEXT DOSE ON 24/MAY/2021
     Route: 042
     Dates: start: 20210510, end: 20210510
  2. OCRELIZUMAB [Suspect]
     Active Substance: OCRELIZUMAB
     Route: 042
     Dates: start: 20211121, end: 20211121
  3. OCRELIZUMAB [Suspect]
     Active Substance: OCRELIZUMAB
     Route: 042
     Dates: start: 20220529, end: 20220529
  4. OCRELIZUMAB [Suspect]
     Active Substance: OCRELIZUMAB
     Route: 042
     Dates: start: 20221205, end: 20221205
  5. FOLIC ACID [Concomitant]
     Active Substance: FOLIC ACID
     Route: 048
  6. VITAMIN D3 [Concomitant]
     Active Substance: CHOLECALCIFEROL
     Route: 048

REACTIONS (2)
  - COVID-19 [Recovered/Resolved]
  - Dizziness [Recovered/Resolved]

NARRATIVE: CASE EVENT DATE: 20220215
